FAERS Safety Report 24067007 (Version 2)
Quarter: 2024Q3

REPORT INFORMATION
  Report Type: Spontaneous
  Country: HU (occurrence: HU)
  Receive Date: 20240709
  Receipt Date: 20240724
  Transmission Date: 20241016
  Serious: Yes (Hospitalization, Other)
  Sender: GLAXOSMITHKLINE
  Company Number: HU-GLAXOSMITHKLINE-HU2024EME082892

PATIENT

DRUGS (6)
  1. LAMOTRIGINE [Suspect]
     Active Substance: LAMOTRIGINE
     Indication: Bipolar disorder
     Dosage: UNK
  2. VENLAFAXINE HYDROCHLORIDE [Suspect]
     Active Substance: VENLAFAXINE HYDROCHLORIDE
     Indication: Bipolar disorder
     Dosage: 75 MG
     Dates: start: 20230610, end: 20230617
  3. ALPRAZOLAM [Concomitant]
     Active Substance: ALPRAZOLAM
     Indication: Product used for unknown indication
     Dosage: UNK
  4. CINOLAZEPAM [Concomitant]
     Active Substance: CINOLAZEPAM
     Indication: Product used for unknown indication
     Dosage: UNK
  5. DIOSMIN\HESPERIDIN [Concomitant]
     Active Substance: DIOSMIN\HESPERIDIN
     Indication: Product used for unknown indication
     Dosage: UNK
  6. LIRAGLUTIDE [Concomitant]
     Active Substance: LIRAGLUTIDE
     Indication: Product used for unknown indication
     Dosage: UNK

REACTIONS (11)
  - Toxic epidermal necrolysis [Recovered/Resolved]
  - Pyrexia [Unknown]
  - Rash pruritic [Recovering/Resolving]
  - Dysphagia [Recovering/Resolving]
  - Lichen planus [Recovering/Resolving]
  - Lip erosion [Unknown]
  - Skin erosion [Recovering/Resolving]
  - Rash papular [Recovering/Resolving]
  - Skin plaque [Recovering/Resolving]
  - Blister [Recovering/Resolving]
  - Nikolsky^s sign [Recovering/Resolving]
